FAERS Safety Report 7832817-5 (Version None)
Quarter: 2011Q4

REPORT INFORMATION
  Report Type: 
  Country: None (occurrence: None)
  Receive Date: 20111024
  Receipt Date: 20111011
  Transmission Date: 20120403
  Serious: Yes (Hospitalization, Other)
  Sender: FDA-Public Use
  Company Number: US-RANBAXY-2011RR-49715

PATIENT
  Sex: Male

DRUGS (7)
  1. VANCOMYCIN HCL [Suspect]
     Indication: POSTOPERATIVE WOUND INFECTION
     Dosage: 250 MG/DAY
     Route: 042
     Dates: start: 20080121, end: 20080122
  2. AMOXICILLIN AND CLAVULANATE POTASSIUM [Suspect]
     Indication: WOUND INFECTION
     Dosage: UNK
     Route: 048
     Dates: start: 20080129, end: 20080130
  3. LEVAQUIN [Suspect]
     Indication: CARDIAC OPERATION
     Dosage: UNK
     Route: 048
     Dates: start: 20080101
  4. VANCOMYCIN HCL [Suspect]
     Indication: MEDIASTINITIS
     Dosage: 375 MG/DAY
     Route: 042
     Dates: start: 20080125, end: 20080130
  5. VANCOMYCIN HCL [Suspect]
     Dosage: 375 MG, TID
     Route: 042
     Dates: end: 20080207
  6. VANCOMYCIN HCL [Suspect]
     Dosage: 250 MG/DAY
     Route: 042
     Dates: start: 20080124, end: 20080125
  7. AMOXICILLIN AND CLAVULANATE POTASSIUM [Suspect]
     Dosage: UNK
     Route: 048

REACTIONS (2)
  - WHEEZING [None]
  - STEVENS-JOHNSON SYNDROME [None]
